FAERS Safety Report 9742563 (Version 1)
Quarter: 2013Q4

REPORT INFORMATION
  Report Type: Spontaneous
  Country: CH (occurrence: CH)
  Receive Date: 20131210
  Receipt Date: 20131210
  Transmission Date: 20140711
  Serious: Yes (Hospitalization)
  Sender: FDA-Public Use
  Company Number: CH-MYLANLABS-2013S1026993

PATIENT
  Age: 84 Year
  Sex: Female

DRUGS (2)
  1. CLONIDINE [Suspect]
     Indication: BACK PAIN
     Dosage: PUMP INFUSION RATE 180MCG/DAY (PUMP CONTAINS 18ML OF 600MCG/ML)
     Route: 037
  2. CLONIDINE [Suspect]
     Indication: BACK PAIN
     Dosage: ESTIMATED REABSORBED DOSE (14ML, 600MCG/ML)
     Route: 058

REACTIONS (9)
  - Overdose [Recovered/Resolved]
  - Device leakage [Recovered/Resolved]
  - Confusional state [Recovered/Resolved]
  - Hallucination, visual [Recovered/Resolved]
  - Hypertension [Recovered/Resolved]
  - Toxicity to various agents [Recovered/Resolved]
  - Nausea [Recovered/Resolved]
  - Vomiting [Recovered/Resolved]
  - Syncope [Recovered/Resolved]
